FAERS Safety Report 10523191 (Version 1)
Quarter: 2014Q4

REPORT INFORMATION
  Report Type: Spontaneous
  Country: GB (occurrence: GB)
  Receive Date: 20141016
  Receipt Date: 20141016
  Transmission Date: 20150528
  Serious: Yes (Other)
  Sender: FDA-Public Use
  Company Number: GB-PFIZER INC-2014282771

PATIENT
  Age: 30 Year
  Sex: Female
  Weight: 63 kg

DRUGS (1)
  1. CHAMPIX [Suspect]
     Active Substance: VARENICLINE TARTRATE
     Indication: SMOKING CESSATION THERAPY
     Dosage: 1 MG, UNK
     Route: 048
     Dates: start: 20140916, end: 20141003

REACTIONS (4)
  - Negative thoughts [Recovered/Resolved]
  - Depressed mood [Recovered/Resolved]
  - Irritability [Recovered/Resolved]
  - Emotional disorder [Recovered/Resolved]

NARRATIVE: CASE EVENT DATE: 20140928
